FAERS Safety Report 25048366 (Version 2)
Quarter: 2025Q1

REPORT INFORMATION
  Report Type: Spontaneous
  Country: JP (occurrence: JP)
  Receive Date: 20250307
  Receipt Date: 20250326
  Transmission Date: 20250408
  Serious: Yes (Other)
  Sender: SANOFI AVENTIS
  Company Number: JP-SA-2025SA064026

PATIENT
  Age: 57 Year
  Sex: Female

DRUGS (5)
  1. THYMOGLOBULINE [Suspect]
     Active Substance: LAPINE T-LYMPHOCYTE IMMUNE GLOBULIN
     Indication: Graft versus host disease in gastrointestinal tract
     Route: 041
  2. PROGRAF [Suspect]
     Active Substance: TACROLIMUS
     Indication: Graft versus host disease in gastrointestinal tract
     Route: 065
  3. PROGRAF [Suspect]
     Active Substance: TACROLIMUS
     Route: 065
  4. METHYLPREDNISOLONE [Concomitant]
     Active Substance: METHYLPREDNISOLONE
     Indication: Graft versus host disease in gastrointestinal tract
     Route: 065
  5. METHYLPREDNISOLONE [Concomitant]
     Active Substance: METHYLPREDNISOLONE
     Route: 065

REACTIONS (10)
  - Ureteric stenosis [Unknown]
  - Renal impairment [Unknown]
  - Viral haemorrhagic cystitis [Unknown]
  - Dysuria [Unknown]
  - Haematuria [Recovering/Resolving]
  - Bacteraemia [Unknown]
  - Ureterolithiasis [Unknown]
  - BK virus infection [Unknown]
  - Staphylococcal infection [Unknown]
  - Urinary tract infection [Unknown]
